FAERS Safety Report 5704663-X (Version None)
Quarter: 2008Q2

REPORT INFORMATION
  Report Type: 
  Country: None (occurrence: None)
  Receive Date: 20080410
  Receipt Date: 20080223
  Transmission Date: 20081010
  Serious: No
  Sender: FDA-Public Use
  Company Number: ADE# 08-026

PATIENT
  Age: 56 Year
  Sex: Female

DRUGS (11)
  1. OXCARBAZEPINE [Suspect]
     Indication: BIPOLAR DISORDER
     Dosage: 1 1/2 TAB 1X DAILY
     Dates: start: 20080108, end: 20080118
  2. SINGULAIR [Concomitant]
  3. TOPAMAX [Concomitant]
  4. LUNESTA [Concomitant]
  5. FLUOXETINE [Concomitant]
  6. PREVACID [Concomitant]
  7. OSCAL [Concomitant]
  8. BONIVA [Concomitant]
  9. LYRICA [Concomitant]
  10. METHYLPREDNISOLONE [Concomitant]
  11. BIOTIN/CHROMIUM [Concomitant]

REACTIONS (3)
  - DEPRESSION [None]
  - FEELING ABNORMAL [None]
  - THERAPEUTIC RESPONSE UNEXPECTED WITH DRUG SUBSTITUTION [None]
